FAERS Safety Report 6709237-X (Version None)
Quarter: 2010Q2

REPORT INFORMATION
  Report Type: 
  Country: None (occurrence: None)
  Receive Date: 20100429
  Receipt Date: 20100419
  Transmission Date: 20101027
  Serious: Yes (Death, Hospitalization)
  Sender: FDA-Public Use
  Company Number: A-CH2010-35821

PATIENT
  Age: 81 Year
  Sex: Male

DRUGS (10)
  1. TRACLEER [Suspect]
     Indication: PULMONARY ARTERIAL HYPERTENSION
     Dosage: 62.5 MG, BID, ORAL
     Route: 048
     Dates: start: 20100406, end: 20100409
  2. ERYTHROMYCIN (ERYTROMYCIN) [Concomitant]
  3. CANDESARTAN CILEXETIL [Concomitant]
  4. FEXOFENADINE HYDROCHLORIDE [Concomitant]
  5. THEOPHYLLINE [Concomitant]
  6. AMBROXOL HYDROCHLORIDE (AMBROXOL HYDROCHLORIDE) [Concomitant]
  7. CLOSTRIDIUM BUTYRICUM (CLOSTRIDIUM BUTYRICUM) [Concomitant]
  8. FELBINAC (FELBINAC) [Concomitant]
  9. ADVAIR HFA [Concomitant]
  10. OXYGEN (OXYGEN) [Concomitant]

REACTIONS (1)
  - RESPIRATORY FAILURE [None]
